FAERS Safety Report 17255467 (Version 1)
Quarter: 2019Q4

REPORT INFORMATION
  Report Type: Spontaneous
  Country: US (occurrence: US)
  Receive Date: 20191216
  Receipt Date: 20191216
  Transmission Date: 20200122
  Serious: Yes (Hospitalization)
  Sender: FDA-Public Use
  Company Number: None

PATIENT
  Age: 50 Year
  Sex: Male

DRUGS (3)
  1. BACLOFEN (BACLOFEN 10MG TAB, UD) [Suspect]
     Active Substance: BACLOFEN
     Indication: MUSCLE SPASMS
     Route: 048
     Dates: start: 20191122, end: 20191128
  2. ATIVAN [Suspect]
     Active Substance: LORAZEPAM
     Indication: AGITATION
     Route: 042
     Dates: start: 20191128, end: 20191129
  3. BACLOFEN (BACLOFEN 10MG TAB, UD) [Suspect]
     Active Substance: BACLOFEN
     Indication: PAIN
     Route: 048
     Dates: start: 20191122, end: 20191128

REACTIONS (3)
  - Somnolence [None]
  - Confusional state [None]
  - Mental status changes [None]

NARRATIVE: CASE EVENT DATE: 20191128
